FAERS Safety Report 8224214-8 (Version None)
Quarter: 2012Q1

REPORT INFORMATION
  Report Type: 
  Country: None (occurrence: None)
  Receive Date: 20120321
  Receipt Date: 20120314
  Transmission Date: 20120608
  Serious: Yes (Hospitalization)
  Sender: FDA-Public Use
  Company Number: FR-SANOFI-AVENTIS-2012SA017064

PATIENT
  Age: 61 Year
  Sex: Male

DRUGS (3)
  1. RIFADIN [Suspect]
     Route: 041
     Dates: start: 20120212, end: 20120302
  2. VANCOMYCIN [Suspect]
     Route: 041
     Dates: start: 20120212, end: 20120302
  3. OFLOXACIN [Suspect]
     Route: 041
     Dates: start: 20120212, end: 20120302

REACTIONS (1)
  - DRUG RASH WITH EOSINOPHILIA AND SYSTEMIC SYMPTOMS [None]
